FAERS Safety Report 10956397 (Version 1)
Quarter: 2015Q1

REPORT INFORMATION
  Report Type: Report from Study
  Country: NL (occurrence: NL)
  Receive Date: 20150326
  Receipt Date: 20150326
  Transmission Date: 20150721
  Serious: Yes (Hospitalization)
  Sender: FDA-Public Use
  Company Number: NL-ABBVIE-15P-114-1363799-00

PATIENT
  Sex: Male

DRUGS (3)
  1. BETAMETHASON [Concomitant]
     Indication: PRODUCT USED FOR UNKNOWN INDICATION
     Dosage: 1 MG/G; CUTANEOUS
  2. LUCRIN (LEUPRORELINE) [Suspect]
     Active Substance: LEUPROLIDE ACETATE
     Indication: PROSTATE CANCER
     Route: 058
     Dates: start: 20131031
  3. CHLORAMPHENICOL [Concomitant]
     Active Substance: CHLORAMPHENICOL
     Indication: PRODUCT USED FOR UNKNOWN INDICATION
     Dosage: 10 MG/G TUBE 5G
     Route: 047

REACTIONS (2)
  - Rectal haemorrhage [Not Recovered/Not Resolved]
  - Prostatic operation [Unknown]
